FAERS Safety Report 8541996-6 (Version None)
Quarter: 2012Q3

REPORT INFORMATION
  Report Type: 
  Country: None (occurrence: None)
  Receive Date: 20120726
  Receipt Date: 20111003
  Transmission Date: 20120928
  Serious: No
  Sender: FDA-Public Use
  Company Number: US-ASTRAZENECA-2011SE59134

PATIENT
  Age: 38 Year
  Sex: Male
  Weight: 79.4 kg

DRUGS (3)
  1. MARIJUANA [Suspect]
  2. THIFOR [Suspect]
  3. SEROQUEL [Suspect]
     Indication: BIPOLAR DISORDER
     Route: 048

REACTIONS (12)
  - EATING DISORDER [None]
  - BACK PAIN [None]
  - DRUG DEPENDENCE [None]
  - DEPRESSION [None]
  - CHEST DISCOMFORT [None]
  - PAIN [None]
  - HYPOAESTHESIA [None]
  - LIMB DISCOMFORT [None]
  - DECREASED APPETITE [None]
  - DRUG INEFFECTIVE [None]
  - DECREASED INTEREST [None]
  - ACTIVITIES OF DAILY LIVING IMPAIRED [None]
